FAERS Safety Report 6112631-1 (Version None)
Quarter: 2009Q1

REPORT INFORMATION
  Report Type: 
  Country: None (occurrence: None)
  Receive Date: 20090312
  Receipt Date: 20090227
  Transmission Date: 20090719
  Serious: Yes (Other)
  Sender: FDA-Public Use
  Company Number: BR-BAYER-200814418LA

PATIENT
  Age: 31 Year
  Sex: Female

DRUGS (5)
  1. YAZ [Suspect]
     Indication: DRUG USE FOR UNKNOWN INDICATION
     Route: 048
     Dates: start: 20071101, end: 20080401
  2. CITALOPRAM HYDROBROMIDE [Concomitant]
     Indication: MENTAL DISORDER
     Route: 065
  3. ZETRON [Concomitant]
     Indication: MENTAL DISORDER
     Route: 065
  4. VALTRIAN [Concomitant]
     Indication: CARDIOVASCULAR DISORDER
     Route: 065
  5. PONDERA [Concomitant]
     Indication: MENTAL DISORDER
     Route: 065

REACTIONS (2)
  - PRE-ECLAMPSIA [None]
  - PREGNANCY ON ORAL CONTRACEPTIVE [None]
